FAERS Safety Report 8348805-9 (Version None)
Quarter: 2012Q2

REPORT INFORMATION
  Report Type: 
  Country: None (occurrence: None)
  Receive Date: 20120508
  Receipt Date: 20120427
  Transmission Date: 20120825
  Serious: Yes (Hospitalization)
  Sender: FDA-Public Use
  Company Number: IPC201204-000182

PATIENT
  Age: 78 Year
  Sex: Female

DRUGS (2)
  1. HYDROXYCHLOROQUINE SULFATE [Suspect]
     Indication: RHEUMATOID ARTHRITIS
  2. GLYBURIDE [Suspect]
     Indication: TYPE 2 DIABETES MELLITUS

REACTIONS (6)
  - DIZZINESS [None]
  - PALPITATIONS [None]
  - HYPOGLYCAEMIA [None]
  - COLD SWEAT [None]
  - DISEASE RECURRENCE [None]
  - NAUSEA [None]
